FAERS Safety Report 10583837 (Version 1)
Quarter: 2014Q4

REPORT INFORMATION
  Report Type: Report from Study
  Country: SK (occurrence: SK)
  Receive Date: 20141114
  Receipt Date: 20141114
  Transmission Date: 20150529
  Serious: Yes (Other)
  Sender: FDA-Public Use
  Company Number: SK-ABBVIE-14K-260-1307566-00

PATIENT
  Age: 27 Year
  Sex: Female

DRUGS (1)
  1. HUMIRA [Suspect]
     Active Substance: ADALIMUMAB
     Indication: COLITIS ULCERATIVE
     Route: 065

REACTIONS (3)
  - Breast mass [Unknown]
  - Resuscitation [Unknown]
  - Anaphylactic reaction [Unknown]
